FAERS Safety Report 11625569 (Version 1)
Quarter: 2015Q4

REPORT INFORMATION
  Report Type: Report from Study
  Country: CA (occurrence: CA)
  Receive Date: 20151013
  Receipt Date: 20151013
  Transmission Date: 20160304
  Serious: Yes (Death, Disabling)
  Sender: FDA-Public Use
  Company Number: CA-ASTRAZENECA-2015SE86620

PATIENT
  Age: 94 Year
  Sex: Male

DRUGS (1)
  1. ZOLADEX LA [Suspect]
     Active Substance: GOSERELIN ACETATE
     Indication: PROSTATE CANCER
     Route: 058
     Dates: start: 20140720

REACTIONS (6)
  - General physical health deterioration [Not Recovered/Not Resolved]
  - Somnolence [Not Recovered/Not Resolved]
  - Decreased appetite [Not Recovered/Not Resolved]
  - Amnesia [Not Recovered/Not Resolved]
  - Death [Fatal]
  - Gait disturbance [Not Recovered/Not Resolved]

NARRATIVE: CASE EVENT DATE: 20150914
